FAERS Safety Report 15211128 (Version 1)
Quarter: 2018Q3

REPORT INFORMATION
  Report Type: Report from Study
  Country: None (occurrence: US)
  Receive Date: 20180729
  Receipt Date: 20180729
  Transmission Date: 20181010
  Serious: Yes (Other)
  Sender: FDA-Public Use
  Company Number: US-ABBVIE-18K-163-2428893-00

PATIENT
  Sex: Female

DRUGS (1)
  1. MAVYRET [Suspect]
     Active Substance: GLECAPREVIR\PIBRENTASVIR
     Indication: CHRONIC HEPATITIS C
     Dosage: WITH FOOD
     Route: 048
     Dates: start: 201806

REACTIONS (6)
  - Weight decreased [Unknown]
  - Fatigue [Not Recovered/Not Resolved]
  - Decreased appetite [Unknown]
  - Atrophic glossitis [Unknown]
  - Hepatic cancer [Unknown]
  - Feeling hot [Unknown]

NARRATIVE: CASE EVENT DATE: 2018
